FAERS Safety Report 8835226 (Version 3)
Quarter: 2013Q1

REPORT INFORMATION
  Report Type: Spontaneous
  Country: DE (occurrence: DE)
  Receive Date: 20121011
  Receipt Date: 20130104
  Transmission Date: 20140127
  Serious: Yes (Other)
  Sender: FDA-Public Use
  Company Number: DE-ROCHE-1143895

PATIENT
  Sex: Male

DRUGS (7)
  1. MABTHERA [Suspect]
     Indication: MANTLE CELL LYMPHOMA
     Route: 065
     Dates: end: 201206
  2. MABTHERA [Suspect]
     Route: 065
     Dates: end: 201207
  3. BENDAMUSTINE [Suspect]
     Indication: MANTLE CELL LYMPHOMA
     Route: 065
     Dates: end: 201207
  4. CYCLOPHOSPHAMIDE [Concomitant]
     Indication: MANTLE CELL LYMPHOMA
  5. DOXORUBICIN [Concomitant]
     Indication: MANTLE CELL LYMPHOMA
  6. VINCRISTIN [Concomitant]
     Indication: MANTLE CELL LYMPHOMA
  7. PREDNISONE [Concomitant]
     Indication: MANTLE CELL LYMPHOMA

REACTIONS (2)
  - Visual impairment [Unknown]
  - Mantle cell lymphoma recurrent [Unknown]
